FAERS Safety Report 5693461-1 (Version None)
Quarter: 2008Q2

REPORT INFORMATION
  Report Type: 
  Country: None (occurrence: None)
  Receive Date: 20080402
  Receipt Date: 20080402
  Transmission Date: 20081010
  Serious: Yes (Hospitalization)
  Sender: FDA-Public Use
  Company Number: None

PATIENT
  Sex: Male
  Weight: 96.1626 kg

DRUGS (8)
  1. CUBICIN [Suspect]
     Indication: STAPHYLOCOCCAL INFECTION
     Dosage: 500 MG Q24H IV
     Route: 042
     Dates: start: 20080216, end: 20080227
  2. ACETAMINOPHEN [Concomitant]
  3. ASPIRIN [Concomitant]
  4. PROTONIX [Concomitant]
  5. OXYCONTIN [Concomitant]
  6. DIPHENHYDRAMINE [Concomitant]
  7. TRIAMCINOLONE [Concomitant]
  8. NYSTATIN [Concomitant]

REACTIONS (5)
  - DIZZINESS [None]
  - HYPOAESTHESIA [None]
  - OEDEMA PERIPHERAL [None]
  - PARAESTHESIA [None]
  - TREMOR [None]
